FAERS Safety Report 13669141 (Version 1)
Quarter: 2017Q2

REPORT INFORMATION
  Report Type: Spontaneous
  Country: FR (occurrence: FR)
  Receive Date: 20170620
  Receipt Date: 20170620
  Transmission Date: 20170830
  Serious: Yes (Hospitalization)
  Sender: FDA-Public Use
  Company Number: FR-MERCK KGAA-2022266

PATIENT
  Age: 95 Year
  Sex: Female

DRUGS (6)
  1. IMOVANE [Suspect]
     Active Substance: ZOPICLONE
     Route: 048
  2. BISOCE [Suspect]
     Active Substance: BISOPROLOL
     Route: 048
  3. NOVOTHYROX [Suspect]
     Active Substance: LEVOTHYROXINE SODIUM
     Indication: THYROIDITIS
     Route: 048
  4. AMLOR [Suspect]
     Active Substance: AMLODIPINE BESYLATE
     Route: 048
     Dates: end: 201705
  5. TAHOR [Suspect]
     Active Substance: ATORVASTATIN CALCIUM
     Route: 048
  6. KARDEGIC [Suspect]
     Active Substance: ASPIRIN LYSINE
     Route: 048

REACTIONS (1)
  - Eczema [Recovering/Resolving]

NARRATIVE: CASE EVENT DATE: 2015
